FAERS Safety Report 14699841 (Version 1)
Quarter: 2018Q1

REPORT INFORMATION
  Report Type: Spontaneous
  Country: JP (occurrence: JP)
  Receive Date: 20180330
  Receipt Date: 20180330
  Transmission Date: 20180509
  Serious: Yes (Hospitalization)
  Sender: FDA-Public Use
  Company Number: PHJP2018JP007108

PATIENT
  Age: 19 Month
  Sex: Male
  Weight: 10.7 kg

DRUGS (2)
  1. CARBAMAZEPINE. [Suspect]
     Active Substance: CARBAMAZEPINE
     Indication: SEIZURE
  2. CARBAMAZEPINE. [Suspect]
     Active Substance: CARBAMAZEPINE
     Indication: GASTROENTERITIS
     Dosage: 500 MG, UNK
     Route: 048

REACTIONS (6)
  - Seizure [Recovering/Resolving]
  - Opisthotonus [Unknown]
  - Toxicity to various agents [Unknown]
  - Anticonvulsant drug level increased [Recovering/Resolving]
  - Encephalopathy [Unknown]
  - Overdose [Unknown]
